FAERS Safety Report 14004698 (Version 1)
Quarter: 2017Q3

REPORT INFORMATION
  Report Type: Spontaneous
  Country: BR (occurrence: BR)
  Receive Date: 20170922
  Receipt Date: 20170922
  Transmission Date: 20171128
  Serious: Yes (Other)
  Sender: FDA-Public Use
  Company Number: BR-TORRENT-00004156

PATIENT
  Age: 35 Year
  Sex: Male

DRUGS (4)
  1. RESPIDON [Suspect]
     Active Substance: RISPERIDONE
  2. LITHIUM CARBONATE. [Concomitant]
     Active Substance: LITHIUM CARBONATE
  3. RIVOTRIL [Concomitant]
     Active Substance: CLONAZEPAM
  4. ESCITALOPRAM OXALATE. [Suspect]
     Active Substance: ESCITALOPRAM OXALATE

REACTIONS (7)
  - Headache [Not Recovered/Not Resolved]
  - Suicidal ideation [Not Recovered/Not Resolved]
  - Somnolence [Unknown]
  - Feeling guilty [Unknown]
  - Agitation [Unknown]
  - Logorrhoea [Unknown]
  - Weight increased [Unknown]

NARRATIVE: CASE EVENT DATE: 201605
